FAERS Safety Report 20049974 (Version 1)
Quarter: 2021Q4

REPORT INFORMATION
  Report Type: Spontaneous
  Country: CN (occurrence: CN)
  Receive Date: 20211109
  Receipt Date: 20211109
  Transmission Date: 20220303
  Serious: Yes (Other)
  Sender: FDA-Public Use
  Company Number: CN-PFIZER INC-202101458769

PATIENT
  Age: 45 Year
  Sex: Female
  Weight: 62 kg

DRUGS (3)
  1. EPIRUBICIN HYDROCHLORIDE [Suspect]
     Active Substance: EPIRUBICIN HYDROCHLORIDE
     Indication: Chemotherapy
     Dosage: 150 MG, 1X/DAY
     Route: 041
     Dates: start: 20210827, end: 20210827
  2. CYCLOPHOSPHAMIDE [Suspect]
     Active Substance: CYCLOPHOSPHAMIDE
     Indication: Chemotherapy
     Dosage: 960.000 MG, 1X/DAY
     Route: 041
     Dates: start: 20210827, end: 20210827
  3. MESNA [Suspect]
     Active Substance: MESNA
     Indication: Urinary tract toxicity
     Dosage: 0.400 G, 3X/DAY
     Route: 040
     Dates: start: 20210827, end: 20210827

REACTIONS (4)
  - Abdominal discomfort [Recovering/Resolving]
  - Blood albumin decreased [Recovering/Resolving]
  - Haemoglobin decreased [Recovering/Resolving]
  - White blood cell count decreased [Recovering/Resolving]

NARRATIVE: CASE EVENT DATE: 20210827
